FAERS Safety Report 14274789 (Version 4)
Quarter: 2018Q4

REPORT INFORMATION
  Report Type: Spontaneous
  Country: US (occurrence: US)
  Receive Date: 20171212
  Receipt Date: 20181120
  Transmission Date: 20190204
  Serious: Yes (Other)
  Sender: FDA-Public Use
  Company Number: US-DSJP-DSU-2017-146952

PATIENT

DRUGS (1)
  1. BENICAR HCT [Suspect]
     Active Substance: HYDROCHLOROTHIAZIDE\OLMESARTAN MEDOXOMIL
     Indication: PRODUCT USED FOR UNKNOWN INDICATION
     Dosage: 40/12.5MG, QD
     Route: 048
     Dates: start: 20050101, end: 20170815

REACTIONS (12)
  - Large intestine erosion [Unknown]
  - Barrett^s oesophagus [Unknown]
  - Helicobacter infection [Unknown]
  - Diverticulum [Unknown]
  - Gastric polyps [Recovered/Resolved]
  - Gastritis [Recovering/Resolving]
  - Colitis [Unknown]
  - Gastrooesophageal reflux disease [Unknown]
  - Polyp [Recovered/Resolved]
  - Small intestinal obstruction [Recovered/Resolved]
  - Large intestine polyp [Recovered/Resolved]
  - Diarrhoea [Recovered/Resolved]

NARRATIVE: CASE EVENT DATE: 20071008
